FAERS Safety Report 5426687-2 (Version None)
Quarter: 2007Q3

REPORT INFORMATION
  Report Type: 
  Country: None (occurrence: None)
  Receive Date: 20070731
  Receipt Date: 20070502
  Transmission Date: 20080115
  Serious: No
  Sender: FDA-Public Use
  Company Number: 2006PV009740

PATIENT
  Age: 73 Year
  Sex: Male
  Weight: 107 kg

DRUGS (15)
  1. EXENATIDE(EXENATIDE) PEN,DISPOSABLE [Suspect]
     Indication: TYPE 2 DIABETES MELLITUS
     Dosage: 5 UG, 2/D, SUBCUTANEOUS,5 UG,2/D, 10 UG,2/D, 5 UG, 2/D, 10 UG, 2/D
     Route: 058
     Dates: start: 20060101, end: 20060101
  2. EXENATIDE(EXENATIDE) PEN,DISPOSABLE [Suspect]
     Indication: TYPE 2 DIABETES MELLITUS
     Dosage: 5 UG, 2/D, SUBCUTANEOUS,5 UG,2/D, 10 UG,2/D, 5 UG, 2/D, 10 UG, 2/D
     Route: 058
     Dates: start: 20060223, end: 20060309
  3. EXENATIDE(EXENATIDE) PEN,DISPOSABLE [Suspect]
     Indication: TYPE 2 DIABETES MELLITUS
     Dosage: 5 UG, 2/D, SUBCUTANEOUS,5 UG,2/D, 10 UG,2/D, 5 UG, 2/D, 10 UG, 2/D
     Route: 058
     Dates: start: 20060317, end: 20060322
  4. EXENATIDE(EXENATIDE) PEN,DISPOSABLE [Suspect]
     Indication: TYPE 2 DIABETES MELLITUS
     Dosage: 5 UG, 2/D, SUBCUTANEOUS,5 UG,2/D, 10 UG,2/D, 5 UG, 2/D, 10 UG, 2/D
     Route: 058
     Dates: start: 20060101
  5. EXENATIDE(EXENATIDE) PEN,DISPOSABLE [Suspect]
     Indication: TYPE 2 DIABETES MELLITUS
     Dosage: 5 UG, 2/D, SUBCUTANEOUS,5 UG,2/D, 10 UG,2/D, 5 UG, 2/D, 10 UG, 2/D
     Route: 058
     Dates: start: 20060101
  6. GLUCOVANCE [Concomitant]
  7. AVANDIA [Concomitant]
  8. HUMULIN R [Concomitant]
  9. GLYBURIDE AND METFORMIN HCL [Concomitant]
  10. METFORMIN HCL [Concomitant]
  11. EXENATIDE [Concomitant]
  12. INSULIN [Concomitant]
  13. EXENATIDE(EXENATIDE) PEN,DISPOSABLE [Suspect]
  14. EXENATIDE(EXENATIDE) PEN,DISPOSABLE [Suspect]
  15. EXENATIDE(EXENATIDE) PEN,DISPOSABLE [Suspect]

REACTIONS (10)
  - ABDOMINAL PAIN UPPER [None]
  - DECREASED APPETITE [None]
  - DIARRHOEA [None]
  - ERUCTATION [None]
  - FLATULENCE [None]
  - GLYCOSYLATED HAEMOGLOBIN INCREASED [None]
  - HYPOGLYCAEMIA [None]
  - INSOMNIA [None]
  - NEUROPATHY PERIPHERAL [None]
  - WEIGHT DECREASED [None]
